FAERS Safety Report 22296974 (Version 1)
Quarter: 2023Q2

REPORT INFORMATION
  Report Type: Report from Study
  Country: US (occurrence: US)
  Receive Date: 20230509
  Receipt Date: 20230509
  Transmission Date: 20230721
  Serious: Yes (Other)
  Sender: FDA-Public Use
  Company Number: US-ABBVIE-4754902

PATIENT
  Sex: Female

DRUGS (2)
  1. HUMIRA [Suspect]
     Active Substance: ADALIMUMAB
     Indication: Psoriasis
     Dosage: FORM STRENGTH: 40 MG
     Route: 058
  2. HUMIRA [Suspect]
     Active Substance: ADALIMUMAB
     Indication: Psoriatic arthropathy

REACTIONS (8)
  - Intervertebral disc protrusion [Unknown]
  - High frequency ablation [Unknown]
  - Joint swelling [Unknown]
  - Gait disturbance [Unknown]
  - Nephrolithiasis [Unknown]
  - Medical device implantation [Unknown]
  - Road traffic accident [Unknown]
  - Pain [Unknown]

NARRATIVE: CASE EVENT DATE: 20030101
